FAERS Safety Report 18301184 (Version 1)
Quarter: 2020Q3

REPORT INFORMATION
  Report Type: Spontaneous
  Country: US (occurrence: US)
  Receive Date: 20200923
  Receipt Date: 20200923
  Transmission Date: 20201103
  Serious: No
  Sender: FDA-Public Use
  Company Number: US-RECKITT BENCKISER HEALTHCARE INT LIMITED-RB-80482-2020

PATIENT
  Age: 80 Year
  Sex: Female

DRUGS (1)
  1. MUCINEX MAXIMUM STRENGTH [Suspect]
     Active Substance: GUAIFENESIN
     Indication: NASAL CONGESTION
     Dosage: 1200 MILLIGRAM, QD
     Route: 065

REACTIONS (5)
  - Product use in unapproved indication [Unknown]
  - Incorrect product administration duration [Unknown]
  - Product physical issue [Unknown]
  - Product packaging issue [Unknown]
  - Therapeutic response unexpected [Unknown]
